FAERS Safety Report 11805221 (Version 4)
Quarter: 2016Q1

REPORT INFORMATION
  Report Type: Other
  Country: GB (occurrence: GB)
  Receive Date: 20151206
  Receipt Date: 20160218
  Transmission Date: 20160525
  Serious: Yes (Hospitalization)
  Sender: FDA-Public Use
  Company Number: GB-MYLANLABS-2015M1041973

PATIENT

DRUGS (3)
  1. ANASTROZOLE. [Concomitant]
     Active Substance: ANASTROZOLE
     Dosage: 1 MG, QD (NORMAL CORONARY ARTERIES)
     Route: 065
  2. ALENDRONATE [Suspect]
     Active Substance: ALENDRONATE SODIUM
     Indication: OSTEOPOROSIS PROPHYLAXIS
     Dosage: 70 MG, QW (10 MILLIGRAM DAILY; AT BREAKFAST)
     Route: 065
     Dates: start: 20150923
  3. IRON [Suspect]
     Active Substance: IRON
     Dosage: PRN
     Route: 065

REACTIONS (8)
  - Abnormal faeces [Recovering/Resolving]
  - Dizziness [Recovering/Resolving]
  - Chest pain [Recovering/Resolving]
  - Myocardial infarction [Unknown]
  - Chest discomfort [Recovering/Resolving]
  - Faeces discoloured [Recovering/Resolving]
  - Chest crushing [Recovering/Resolving]
  - Frequent bowel movements [Recovering/Resolving]

NARRATIVE: CASE EVENT DATE: 20150923
